FAERS Safety Report 8185851-2 (Version None)
Quarter: 2012Q1

REPORT INFORMATION
  Report Type: 
  Country: None (occurrence: None)
  Receive Date: 20120305
  Receipt Date: 20120227
  Transmission Date: 20120608
  Serious: No
  Sender: FDA-Public Use
  Company Number: US-PFIZER INC-2012052096

PATIENT

DRUGS (2)
  1. EFFEXOR XR [Suspect]
     Dosage: UNK
  2. PREMPRO [Suspect]
     Dosage: UNK

REACTIONS (2)
  - NASOPHARYNGITIS [None]
  - OROPHARYNGEAL PAIN [None]
